FAERS Safety Report 12619782 (Version 1)
Quarter: 2016Q3

REPORT INFORMATION
  Report Type: Report from Study
  Country: US (occurrence: US)
  Receive Date: 20160803
  Receipt Date: 20160803
  Transmission Date: 20161109
  Serious: Yes (Hospitalization)
  Sender: FDA-Public Use
  Company Number: US-ABBVIE-16K-163-1685920-00

PATIENT
  Sex: Female
  Weight: 59.02 kg

DRUGS (1)
  1. HUMIRA [Suspect]
     Active Substance: ADALIMUMAB
     Indication: PSORIASIS
     Route: 058
     Dates: start: 201511, end: 20160529

REACTIONS (4)
  - Developmental hip dysplasia [Not Recovered/Not Resolved]
  - Cartilage injury [Not Recovered/Not Resolved]
  - Joint dislocation [Unknown]
  - Cartilage injury [Not Recovered/Not Resolved]

NARRATIVE: CASE EVENT DATE: 2016
